FAERS Safety Report 5639768-5 (Version None)
Quarter: 2008Q1

REPORT INFORMATION
  Report Type: 
  Country: None (occurrence: None)
  Receive Date: 20080225
  Receipt Date: 20080211
  Transmission Date: 20080703
  Serious: Yes (Hospitalization)
  Sender: FDA-Public Use
  Company Number: B0509035A

PATIENT
  Age: 30 Year
  Sex: Female

DRUGS (1)
  1. AUGMENTIN [Suspect]
     Indication: CYSTITIS ESCHERICHIA
     Dosage: 3 GRAM(S) / PER DAY / ORAL
     Route: 048
     Dates: start: 20071031, end: 20071101

REACTIONS (7)
  - CHILLS [None]
  - CLOSTRIDIUM DIFFICILE TOXIN TEST POSITIVE [None]
  - CULTURE URINE POSITIVE [None]
  - DIARRHOEA [None]
  - ESCHERICHIA INFECTION [None]
  - PYREXIA [None]
  - RECTAL HAEMORRHAGE [None]
